FAERS Safety Report 24588856 (Version 1)
Quarter: 2024Q4

REPORT INFORMATION
  Report Type: Spontaneous
  Country: US (occurrence: None)
  Receive Date: 20241107
  Receipt Date: 20241107
  Transmission Date: 20250115
  Serious: Yes (Other)
  Sender: NORDIC PHARMA
  Company Number: US-MLMSERVICE-20241009-PI222846-00271-1

PATIENT
  Age: 81 Year
  Sex: Male

DRUGS (3)
  1. METHOTREXATE [Suspect]
     Active Substance: METHOTREXATE
     Indication: Vasculitis
  2. HYDROXYCHLOROQUINE [Concomitant]
     Active Substance: HYDROXYCHLOROQUINE
     Indication: Vasculitis
  3. PREDNISONE [Concomitant]
     Active Substance: PREDNISONE
     Indication: Rheumatoid arthritis

REACTIONS (5)
  - Abscess limb [Recovering/Resolving]
  - Brain abscess [Recovering/Resolving]
  - Vasogenic cerebral oedema [Recovering/Resolving]
  - Nocardiosis [Recovering/Resolving]
  - Product use in unapproved indication [Unknown]
